FAERS Safety Report 10267788 (Version 1)
Quarter: 2014Q2

REPORT INFORMATION
  Report Type: Spontaneous
  Country: IT (occurrence: IT)
  Receive Date: 20140630
  Receipt Date: 20140630
  Transmission Date: 20141212
  Serious: Yes (Other)
  Sender: FDA-Public Use
  Company Number: IT-MYLANLABS-2014S1014824

PATIENT
  Age: 62 Year
  Sex: Female

DRUGS (3)
  1. ENALAPRIL [Suspect]
     Indication: HYPERTENSIVE CRISIS
     Dosage: 20 MG TOTAL
     Route: 048
     Dates: start: 20140208, end: 20140208
  2. LASIX [Suspect]
     Indication: HYPERTENSIVE CRISIS
     Dosage: 4 DF DAILY
     Route: 048
     Dates: start: 20140208, end: 20140208
  3. DEURSIL [Concomitant]
     Indication: PRODUCT USED FOR UNKNOWN INDICATION
     Dosage: 2 DF
     Route: 048

REACTIONS (3)
  - Hypotension [Unknown]
  - Dizziness [Unknown]
  - Malaise [Unknown]
